FAERS Safety Report 9227861 (Version 1)
Quarter: 2013Q2

REPORT INFORMATION
  Report Type: Spontaneous
  Country: US (occurrence: US)
  Receive Date: 20130412
  Receipt Date: 20130412
  Transmission Date: 20140414
  Serious: Yes (Other)
  Sender: FDA-Public Use
  Company Number: US-PFIZER INC-2013114732

PATIENT
  Sex: Male
  Weight: 111 kg

DRUGS (2)
  1. ZOLOFT [Suspect]
     Indication: MENTAL DISORDER
     Dosage: 100 MG DAILY
  2. ATORVASTATIN [Concomitant]
     Indication: BLOOD CHOLESTEROL INCREASED
     Dosage: 40 MG DAILY

REACTIONS (2)
  - Cerebrovascular accident [Unknown]
  - Insomnia [Unknown]
